FAERS Safety Report 15412241 (Version 1)
Quarter: 2018Q3

REPORT INFORMATION
  Report Type: Spontaneous
  Country: US (occurrence: US)
  Receive Date: 20180921
  Receipt Date: 20180921
  Transmission Date: 20181010
  Serious: Yes (Other)
  Sender: FDA-Public Use
  Company Number: US-ALKEM LABORATORIES LIMITED-US-ALKEM-2018-06124

PATIENT
  Age: 16 Year
  Sex: Female
  Weight: 90 kg

DRUGS (14)
  1. LIDOCAINE. [Suspect]
     Active Substance: LIDOCAINE
     Dosage: 25 ?G/KG/MIN AT FIRST INFUSION FOR 1.6 DAY
     Route: 042
  2. DULOXETINE HYDROCHLORIDE. [Suspect]
     Active Substance: DULOXETINE HYDROCHLORIDE
     Indication: CANCER PAIN
     Dosage: UNK
     Route: 065
  3. LIDOCAINE. [Suspect]
     Active Substance: LIDOCAINE
     Dosage: 15 ?G/KG/MIN AT SECOND INFUSION FOR 4 DAY
     Route: 042
  4. IBUPROFEN. [Suspect]
     Active Substance: IBUPROFEN
     Indication: PRODUCT USED FOR UNKNOWN INDICATION
     Dosage: UNK
     Route: 065
  5. LIDOCAINE. [Suspect]
     Active Substance: LIDOCAINE
     Dosage: 33 ?G/KG/MIN AT THIRD INFUSION FOR 0.4 DAY
     Route: 042
  6. LIDOCAINE. [Suspect]
     Active Substance: LIDOCAINE
     Dosage: 36 ?G/KG/MIN AT FIRST INFUSION FOR 1.5 DAY
     Route: 042
  7. METHADONE HYDROCHLORIDE. [Suspect]
     Active Substance: METHADONE HYDROCHLORIDE
     Indication: CANCER PAIN
     Dosage: UNK
     Route: 065
  8. LIDOCAINE. [Suspect]
     Active Substance: LIDOCAINE
     Dosage: 15 ?G/KG/MIN AT FIRST INFUSION FOR 2 DAY
     Route: 042
  9. LIDOCAINE. [Suspect]
     Active Substance: LIDOCAINE
     Dosage: 33 ?G/KG/MIN AT FIRST INFUSION FOR 1.9 DAY
     Route: 042
  10. KETAMINE [Suspect]
     Active Substance: KETAMINE
     Indication: CANCER PAIN
     Dosage: UNK
     Route: 065
  11. LIDOCAINE. [Suspect]
     Active Substance: LIDOCAINE
     Indication: CANCER PAIN
     Dosage: 1 MG/KG, LOADING DOSE
     Route: 042
  12. LIDOCAINE. [Suspect]
     Active Substance: LIDOCAINE
     Dosage: 33 ?G/KG/MIN AT FIRST INFUSION FOR 0.6 DAY
     Route: 042
  13. PREGABALIN. [Suspect]
     Active Substance: PREGABALIN
     Indication: CANCER PAIN
     Dosage: UNK
     Route: 065
  14. LIDOCAINE. [Suspect]
     Active Substance: LIDOCAINE
     Dosage: 33 ?G/KG/MIN AT FORTH INFUSION FOR 0.2 DAY
     Route: 042

REACTIONS (3)
  - Drug ineffective [Unknown]
  - Paraesthesia [Unknown]
  - Therapy partial responder [Unknown]
